FAERS Safety Report 20670950 (Version 1)
Quarter: 2022Q2

REPORT INFORMATION
  Report Type: Spontaneous
  Country: US (occurrence: US)
  Receive Date: 20220404
  Receipt Date: 20220404
  Transmission Date: 20220721
  Serious: No
  Sender: FDA-Public Use
  Company Number: US-PFIZER INC-202101090290

PATIENT
  Age: 64 Year
  Sex: Female
  Weight: 62.585 kg

DRUGS (1)
  1. IBRANCE [Suspect]
     Active Substance: PALBOCICLIB
     Indication: Breast cancer female
     Dosage: 125 MG, CYCLIC (1DAILY FOR 21 DAYS)
     Route: 048
     Dates: start: 20210727

REACTIONS (1)
  - Epistaxis [Recovered/Resolved]
